FAERS Safety Report 4374915-7 (Version None)
Quarter: 2004Q2

REPORT INFORMATION
  Report Type: 
  Country: None (occurrence: None)
  Receive Date: 20040609
  Receipt Date: 20040424
  Transmission Date: 20050107
  Serious: No
  Sender: FDA-Public Use
  Company Number: PHEH2004US04627

PATIENT
  Age: 2 Year
  Sex: Male

DRUGS (4)
  1. ELIDEL [Suspect]
     Indication: DERMATITIS ATOPIC
     Dosage: UNK, PRN
     Route: 061
     Dates: start: 20030410, end: 20030701
  2. HYDROCORTISONE [Concomitant]
     Dates: start: 20030201
  3. SUN BATH PROTECTIVE TANNING LOTION [Concomitant]
  4. FLOVENT [Concomitant]

REACTIONS (2)
  - GRANULOMA [None]
  - SKIN PAPILLOMA [None]
